FAERS Safety Report 9034528 (Version 1)
Quarter: 2013Q1

REPORT INFORMATION
  Report Type: Spontaneous
  Country: NL (occurrence: NL)
  Receive Date: 20130128
  Receipt Date: 20130128
  Transmission Date: 20140127
  Serious: Yes (Other)
  Sender: FDA-Public Use
  Company Number: NL-BAYER-2013-009701

PATIENT
  Age: 28 Year
  Sex: Female

DRUGS (1)
  1. MIRENA [Suspect]
     Dosage: 20 MCG/24HR, CONT
     Route: 015
     Dates: start: 2012

REACTIONS (5)
  - Abdominal discomfort [None]
  - Pain [None]
  - Cystitis [None]
  - Kidney infection [None]
  - Pelvic infection [None]
